FAERS Safety Report 6503465-4 (Version None)
Quarter: 2009Q4

REPORT INFORMATION
  Report Type: 
  Country: None (occurrence: None)
  Receive Date: 20091217
  Receipt Date: 20091122
  Transmission Date: 20100525
  Serious: No
  Sender: FDA-Public Use
  Company Number: US-BAYER-200917163BCC

PATIENT
  Sex: Male

DRUGS (1)
  1. ALEVE (CAPLET) [Suspect]
     Indication: BACK PAIN
     Dosage: TOTAL DAILY DOSE: 220 MG  UNIT DOSE: 220 MG
     Route: 048

REACTIONS (1)
  - INSOMNIA [None]
